FAERS Safety Report 7706303-7 (Version None)
Quarter: 2011Q3

REPORT INFORMATION
  Report Type: 
  Country: None (occurrence: None)
  Receive Date: 20110824
  Receipt Date: 20110808
  Transmission Date: 20111222
  Serious: Yes (Life-Threatening, Hospitalization, Disabling, Other)
  Sender: FDA-Public Use
  Company Number: IT-PFIZER INC-2011148972

PATIENT
  Age: 36 Year
  Sex: Male

DRUGS (5)
  1. NIFEDIPINE [Suspect]
     Route: 048
  2. ATENOLOL [Suspect]
     Dosage: 10 G, UNK
     Route: 048
  3. MOTENS [Suspect]
     Route: 048
  4. FLUOXETINE [Suspect]
     Route: 048
  5. SERTRALINE HYDROCHLORIDE [Suspect]
     Route: 048

REACTIONS (5)
  - MULTI-ORGAN FAILURE [None]
  - CARDIAC ARREST [None]
  - TOXICITY TO VARIOUS AGENTS [None]
  - RHABDOMYOLYSIS [None]
  - CARDIOGENIC SHOCK [None]
